FAERS Safety Report 15338030 (Version 1)
Quarter: 2018Q3

REPORT INFORMATION
  Report Type: Spontaneous
  Country: US (occurrence: US)
  Receive Date: 20180827
  Receipt Date: 20180827
  Transmission Date: 20181010
  Serious: Yes (Hospitalization)
  Sender: FDA-Public Use
  Company Number: None

PATIENT
  Age: 63 Year
  Sex: Male

DRUGS (1)
  1. ZYTIGA [Suspect]
     Active Substance: ABIRATERONE ACETATE
     Indication: PROSTATE CANCER
     Route: 048
     Dates: start: 20180623, end: 20180720

REACTIONS (5)
  - Asthenia [None]
  - Dizziness [None]
  - Vital capacity decreased [None]
  - Retching [None]
  - Decreased appetite [None]

NARRATIVE: CASE EVENT DATE: 20180720
